FAERS Safety Report 5241401-1 (Version None)
Quarter: 2007Q1

REPORT INFORMATION
  Report Type: 
  Country: None (occurrence: None)
  Receive Date: 20070220
  Receipt Date: 20070205
  Transmission Date: 20070707
  Serious: Yes (Life-Threatening, Hospitalization, Disabling, Other)
  Sender: FDA-Public Use
  Company Number: GB-KINGPHARMUSA00001-K200700144

PATIENT

DRUGS (3)
  1. ALTACE [Suspect]
     Dosage: 35 MG, SINGLE
  2. METFORMIN [Suspect]
     Dosage: 56 G, SINGLE
  3. ALCOHOL                            /00002101/ [Suspect]
     Dosage: 500 ML OVER 4 HOURS

REACTIONS (22)
  - ABDOMINAL PAIN LOWER [None]
  - APNOEA [None]
  - BLOOD LACTIC ACID INCREASED [None]
  - BODY TEMPERATURE DECREASED [None]
  - CARDIO-RESPIRATORY ARREST [None]
  - COMPARTMENT SYNDROME [None]
  - DEHYDRATION [None]
  - DIARRHOEA [None]
  - HYPOTENSION [None]
  - LACTIC ACIDOSIS [None]
  - LEG AMPUTATION [None]
  - METABOLIC ACIDOSIS [None]
  - OEDEMA PERIPHERAL [None]
  - OVERDOSE [None]
  - PAIN IN EXTREMITY [None]
  - PALLOR [None]
  - PARTIAL SEIZURES [None]
  - RENAL IMPAIRMENT [None]
  - RHABDOMYOLYSIS [None]
  - SENSORY LOSS [None]
  - TACHYPNOEA [None]
  - VOMITING [None]
